FAERS Safety Report 4602245-4 (Version None)
Quarter: 2005Q1

REPORT INFORMATION
  Report Type: 
  Country: None (occurrence: None)
  Receive Date: 20050201
  Receipt Date: 20031208
  Transmission Date: 20050727
  Serious: Yes (Other)
  Sender: FDA-Public Use
  Company Number: 200329524BWH

PATIENT
  Age: 51 Year
  Sex: Female

DRUGS (2)
  1. AVELOX [Suspect]
     Indication: SINUSITIS
     Dosage: 400 MG, QD, ORAL; 400 MG, ONCE, ORAL
     Route: 048
     Dates: start: 20031018, end: 20031027
  2. AVELOX [Suspect]
     Indication: SINUSITIS
     Dosage: 400 MG, QD, ORAL; 400 MG, ONCE, ORAL
     Route: 048
     Dates: start: 20031103

REACTIONS (13)
  - ALOPECIA [None]
  - ANAPHYLACTIC REACTION [None]
  - ANXIETY [None]
  - ERYTHEMA [None]
  - FATIGUE [None]
  - FEELING HOT [None]
  - HYPERSENSITIVITY [None]
  - HYPERTENSION [None]
  - PRURITUS [None]
  - RASH ERYTHEMATOUS [None]
  - THROAT TIGHTNESS [None]
  - URTICARIA [None]
  - VAGINAL MYCOSIS [None]
